FAERS Safety Report 24768627 (Version 1)
Quarter: 2024Q4

REPORT INFORMATION
  Report Type: Spontaneous
  Country: CN (occurrence: CN)
  Receive Date: 20241224
  Receipt Date: 20241224
  Transmission Date: 20250115
  Serious: Yes (Other)
  Sender: JIANGSU HENGRUI PHARMACEUTICALS CO., LTD.
  Company Number: CN-JIANGSU HENGRUI PHARMACEUTICALS CO., LTD.-H2024243054

PATIENT
  Age: 45 Year
  Weight: 60 kg

DRUGS (2)
  1. OXALIPLATIN FOR INJECTION [Suspect]
     Active Substance: OXALIPLATIN
     Indication: Hepatic cancer
     Dosage: 110 MG
  2. DEXTROSE [Concomitant]
     Active Substance: DEXTROSE MONOHYDRATE
     Indication: Vehicle solution use
     Dosage: 250 ML

REACTIONS (1)
  - Drug eruption [Recovering/Resolving]
